FAERS Safety Report 11971738 (Version 1)
Quarter: 2016Q1

REPORT INFORMATION
  Report Type: Spontaneous
  Country: CN (occurrence: CN)
  Receive Date: 20160128
  Receipt Date: 20160128
  Transmission Date: 20160526
  Serious: Yes (Hospitalization)
  Sender: FDA-Public Use
  Company Number: CN-BAYER-2016-012007

PATIENT
  Age: 55 Year
  Sex: Female
  Weight: 60 kg

DRUGS (5)
  1. AVELOX [Suspect]
     Active Substance: MOXIFLOXACIN HYDROCHLORIDE
     Indication: INFECTION
     Dosage: 250 ML, QD
     Route: 041
     Dates: start: 20150729, end: 20150730
  2. VITAMIN B6 [Concomitant]
     Active Substance: PYRIDOXINE HYDROCHLORIDE
     Dosage: 0.1 G, UNK
     Dates: start: 20150729
  3. VITAMIN C [ASCORBIC ACID] [Concomitant]
     Dosage: 2 G, UNK
     Dates: start: 20150729
  4. GLUCUROLACTONE [Concomitant]
     Active Substance: GLUCUROLACTONE
     Dosage: 0.3 G, UNK
     Dates: start: 20150729
  5. POTASSIUM CHLORIDE. [Concomitant]
     Active Substance: POTASSIUM CHLORIDE
     Dosage: 0.4 G, UNK
     Dates: start: 20150729

REACTIONS (2)
  - Cold sweat [Recovered/Resolved]
  - Chest discomfort [Recovered/Resolved]

NARRATIVE: CASE EVENT DATE: 20150729
